FAERS Safety Report 11592969 (Version 2)
Quarter: 2015Q4

REPORT INFORMATION
  Report Type: Spontaneous
  Country: IT (occurrence: IT)
  Receive Date: 20151005
  Receipt Date: 20151105
  Transmission Date: 20160304
  Serious: Yes (Death, Hospitalization)
  Sender: FDA-Public Use
  Company Number: IT-ELI_LILLY_AND_COMPANY-IT201509009875

PATIENT
  Age: 66 Year
  Sex: Male

DRUGS (3)
  1. DENOSUMAB [Concomitant]
     Active Substance: DENOSUMAB
     Indication: LUNG ADENOCARCINOMA STAGE IV
     Dosage: UNK, UNKNOWN
     Route: 065
     Dates: end: 20150730
  2. CARBOPLATIN. [Suspect]
     Active Substance: CARBOPLATIN
     Indication: LUNG ADENOCARCINOMA METASTATIC
     Dosage: UNK
     Route: 042
     Dates: start: 20150617, end: 20150730
  3. ALIMTA [Suspect]
     Active Substance: PEMETREXED DISODIUM
     Indication: LUNG ADENOCARCINOMA METASTATIC
     Dosage: 500 MG/M2, CYCLICAL
     Route: 042
     Dates: start: 20150617, end: 20150730

REACTIONS (5)
  - Pancytopenia [Fatal]
  - Septic shock [Fatal]
  - Enterobacter infection [Unknown]
  - Febrile neutropenia [Unknown]
  - Off label use [Recovered/Resolved]

NARRATIVE: CASE EVENT DATE: 20150617
